FAERS Safety Report 25905862 (Version 1)
Quarter: 2025Q4

REPORT INFORMATION
  Report Type: Spontaneous
  Country: US (occurrence: US)
  Receive Date: 20251010
  Receipt Date: 20251010
  Transmission Date: 20260118
  Serious: No
  Sender: TERSERA THERAPEUTICS
  Company Number: US-TERSERA THERAPEUTICS LLC-2025TRS001031

PATIENT

DRUGS (2)
  1. QUZYTTIR [Suspect]
     Active Substance: CETIRIZINE HYDROCHLORIDE
     Indication: Pruritus
     Dosage: UNK
     Route: 042
  2. QUZYTTIR [Suspect]
     Active Substance: CETIRIZINE HYDROCHLORIDE
     Indication: Rash

REACTIONS (1)
  - Condition aggravated [Unknown]
